FAERS Safety Report 16310190 (Version 1)
Quarter: 2019Q2

REPORT INFORMATION
  Report Type: Spontaneous
  Country: DE (occurrence: DE)
  Receive Date: 20190514
  Receipt Date: 20190514
  Transmission Date: 20190711
  Serious: Yes (Hospitalization)
  Sender: FDA-Public Use
  Company Number: PHHY2019DE106822

PATIENT

DRUGS (5)
  1. VALPROIC ACID. [Suspect]
     Active Substance: VALPROIC ACID
     Indication: LENNOX-GASTAUT SYNDROME
     Dosage: 900 MG, QD (DAILY DOSE: 900 MG MILLGRAM(S) EVERY DAYS)
     Route: 048
     Dates: start: 20170614, end: 20180903
  2. LEVETIRACETAM. [Concomitant]
     Active Substance: LEVETIRACETAM
     Indication: LENNOX-GASTAUT SYNDROME
     Dosage: 750 MG, QD (DAILY DOSE: 750 MG MILLGRAM(S) EVERY DAYS)
     Route: 048
  3. TOPIRAMAT [Concomitant]
     Active Substance: TOPIRAMATE
     Indication: LENNOX-GASTAUT SYNDROME
     Dosage: 150 MG, QD (DAILY DOSE: 150 MG MILLGRAM(S) EVERY DAYS)
     Route: 048
  4. COLECALCIFEROL [Concomitant]
     Active Substance: CHOLECALCIFEROL
     Indication: PROPHYLAXIS
     Dosage: 1000 IU, QD (DAILY DOSE: 1000 IU INTERNATIONAL UNIT(S) EVERY DAYS)
     Route: 048
  5. LEVOCARNITIN [Concomitant]
     Indication: PRODUCT USED FOR UNKNOWN INDICATION
     Dosage: 2.4 ML, QD (DAILY DOSE: 2.4 ML MILLILITRE(S) EVERY DAYS)
     Route: 048

REACTIONS (4)
  - Weight decreased [Recovering/Resolving]
  - Seizure [Recovering/Resolving]
  - Hypothyroidism [Recovering/Resolving]
  - Hyperammonaemia [Recovering/Resolving]

NARRATIVE: CASE EVENT DATE: 20180903
